FAERS Safety Report 20991599 (Version 2)
Quarter: 2025Q4

REPORT INFORMATION
  Report Type: Spontaneous
  Country: EU (occurrence: EU)
  Receive Date: 20220622
  Receipt Date: 20251211
  Transmission Date: 20260118
  Serious: Yes (Hospitalization, Other)
  Sender: AUROBINDO
  Company Number: EU-002147023-NVSC2022CZ130681

PATIENT
  Age: 25 Year
  Sex: Male

DRUGS (14)
  1. LINEZOLID [Suspect]
     Active Substance: LINEZOLID
     Indication: Septic shock
     Dosage: 1200 MILLIGRAM, ONCE A DAY (600 MG,BID)
  2. LINEZOLID [Suspect]
     Active Substance: LINEZOLID
     Indication: Enterococcal infection
  3. LINEZOLID [Suspect]
     Active Substance: LINEZOLID
     Indication: Staphylococcal infection
  4. AMIKACIN [Suspect]
     Active Substance: AMIKACIN
     Indication: Septic shock
     Dosage: UNK UNK, ONCE A DAY (UNK, TID (CEFTAZIDIME/ AMIKACIN (3X2.5 G) )
  5. AMIKACIN [Suspect]
     Active Substance: AMIKACIN
     Indication: Staphylococcal infection
     Dosage: 2 GRAM, ONCE A DAY
  6. AMIKACIN [Suspect]
     Active Substance: AMIKACIN
     Indication: Enterococcal infection
  7. CEFTAZIDIME [Suspect]
     Active Substance: CEFTAZIDIME
     Indication: Septic shock
     Dosage: UNK UNK, ONCE A DAY (UNK, TID (CEFTAZIDIME/ AMIKACIN (3X2.5 G))
  8. CEFTAZIDIME [Suspect]
     Active Substance: CEFTAZIDIME
     Indication: Staphylococcal infection
  9. CEFTAZIDIME [Suspect]
     Active Substance: CEFTAZIDIME
     Indication: Enterococcal infection
  10. ANIDULAFUNGIN1 [Concomitant]
     Indication: Pleural effusion
     Dosage: 100 MILLIGRAM, EMPIRICALLY SUPPLEMENTED, STANDARD DOSE 200 MG
  11. NOREPINEPHRINE1 [Concomitant]
     Indication: Septic shock
     Dosage: UNK, 0.6 UG/KG/MIN
     Route: 065
  12. AMPHOTERICIN B [Concomitant]
     Active Substance: AMPHOTERICIN B
     Indication: Septic shock
     Dosage: UNK
     Route: 065
  13. ISAVUCONAZOLE [Concomitant]
     Active Substance: ISAVUCONAZOLE
     Indication: Septic shock
     Dosage: UNK
     Route: 065
  14. POSACONAZOLE [Concomitant]
     Active Substance: POSACONAZOLE
     Indication: Septic shock
     Dosage: UNK
     Route: 065

REACTIONS (1)
  - Mucormycosis [Recovered/Resolved]
